FAERS Safety Report 4318648-1 (Version None)
Quarter: 2004Q1

REPORT INFORMATION
  Report Type: 
  Country: None (occurrence: None)
  Receive Date: 20040315
  Receipt Date: 20040315
  Transmission Date: 20041129
  Serious: No
  Sender: FDA-Public Use
  Company Number: None

PATIENT
  Age: 44 Year
  Sex: Female

DRUGS (2)
  1. TUBERCULIN PURIFIED PROTEIN DERIVITIVE [Suspect]
     Dosage: INTRADERMAL LEFT FOREARM
     Route: 023
     Dates: start: 20040310
  2. TUBERSOL [Suspect]
     Dosage: INTRADERMAL (W FOREARM
     Route: 023
     Dates: start: 20040212

REACTIONS (3)
  - ARTHRALGIA [None]
  - DYSPEPSIA [None]
  - FATIGUE [None]
